FAERS Safety Report 23650527 (Version 1)
Quarter: 2024Q1

REPORT INFORMATION
  Report Type: Spontaneous
  Country: US (occurrence: None)
  Receive Date: 20240320
  Receipt Date: 20240320
  Transmission Date: 20240409
  Serious: Yes (Other)
  Sender: FDA-Public Use
  Company Number: US-ROCHE-3433225

PATIENT
  Age: 67 Year
  Sex: Male
  Weight: 83.9 kg

DRUGS (1)
  1. VABYSMO [Suspect]
     Active Substance: FARICIMAB\FARICIMAB-SVOA
     Indication: Product used for unknown indication
     Dosage: DATE OF LAST VABYSMO INJECTION: 21/SEP/2023?TOTAL NUMBER OF VABYSMO INJECTION RECEIVED PRIOR TO EVEN
     Route: 050
     Dates: start: 20230516

REACTIONS (3)
  - Uveitis [Unknown]
  - Off label use [Unknown]
  - Uveitis [Unknown]

NARRATIVE: CASE EVENT DATE: 20230825
